FAERS Safety Report 4477813-3 (Version None)
Quarter: 2004Q3

REPORT INFORMATION
  Report Type: 
  Country: None (occurrence: None)
  Receive Date: 20040923
  Receipt Date: 20040730
  Transmission Date: 20050211
  Serious: No
  Sender: FDA-Public Use
  Company Number: USA040874238

PATIENT
  Age: 62 Year
  Sex: Female

DRUGS (1)
  1. FORTEO [Suspect]
     Indication: OSTEOPOROSIS

REACTIONS (6)
  - BLADDER SPASM [None]
  - INSOMNIA [None]
  - MOBILITY DECREASED [None]
  - MUSCLE SPASMS [None]
  - PAIN [None]
  - PRURITUS [None]
